FAERS Safety Report 20233688 (Version 1)
Quarter: 2021Q4

REPORT INFORMATION
  Report Type: Other
  Country: US (occurrence: None)
  Receive Date: 20211227
  Receipt Date: 20211227
  Transmission Date: 20220303
  Serious: No
  Sender: FDA-Public Use
  Company Number: US-ROCHE-2990828

PATIENT
  Sex: Female

DRUGS (1)
  1. OCREVUS [Suspect]
     Active Substance: OCRELIZUMAB
     Indication: Multiple sclerosis
     Dosage: 300 MG AT DAY 1 AND DAY 15
     Route: 042

REACTIONS (6)
  - COVID-19 [Unknown]
  - Limb discomfort [Unknown]
  - Pain in extremity [Unknown]
  - Flushing [Unknown]
  - Palmar erythema [Unknown]
  - Pruritus [Unknown]
